FAERS Safety Report 25382152 (Version 1)
Quarter: 2025Q2

REPORT INFORMATION
  Report Type: Spontaneous
  Country: US (occurrence: US)
  Receive Date: 20250531
  Receipt Date: 20250531
  Transmission Date: 20250717
  Serious: Yes (Other)
  Sender: HETERO
  Company Number: US-HETERO-HET2025US02706

PATIENT
  Age: 55 Year
  Sex: Female

DRUGS (8)
  1. COLCHICINE [Suspect]
     Active Substance: COLCHICINE
     Indication: Pericarditis
     Route: 065
  2. COLCHICINE [Suspect]
     Active Substance: COLCHICINE
     Route: 065
  3. COLCHICINE [Suspect]
     Active Substance: COLCHICINE
     Route: 065
  4. COLCHICINE [Suspect]
     Active Substance: COLCHICINE
     Route: 065
  5. IBUPROFEN [Suspect]
     Active Substance: IBUPROFEN
     Indication: Pericarditis
     Route: 065
  6. IBUPROFEN [Suspect]
     Active Substance: IBUPROFEN
     Route: 065
  7. IBUPROFEN [Suspect]
     Active Substance: IBUPROFEN
     Route: 065
  8. ASPIRIN LYSINE [Concomitant]
     Active Substance: ASPIRIN LYSINE
     Indication: Pericarditis
     Route: 065

REACTIONS (2)
  - Drug resistance [Unknown]
  - Off label use [Unknown]
